FAERS Safety Report 13694705 (Version 1)
Quarter: 2017Q2

REPORT INFORMATION
  Report Type: Report from Study
  Country: US (occurrence: US)
  Receive Date: 20170627
  Receipt Date: 20170627
  Transmission Date: 20170830
  Serious: No
  Sender: FDA-Public Use
  Company Number: US-AMGEN-USASL2017095540

PATIENT
  Age: 50 Year
  Sex: Female

DRUGS (1)
  1. ENBREL [Suspect]
     Active Substance: ETANERCEPT
     Indication: PSORIATIC ARTHROPATHY
     Dosage: 50 MG, QWK
     Route: 065

REACTIONS (12)
  - Secretion discharge [Unknown]
  - Injection site warmth [Unknown]
  - Injection site pain [Unknown]
  - Dermatitis contact [Unknown]
  - Headache [Unknown]
  - Influenza [Unknown]
  - Injection site swelling [Unknown]
  - Pruritus generalised [Unknown]
  - Injection site erythema [Unknown]
  - Skin haemorrhage [Unknown]
  - Fatigue [Unknown]
  - Injection site pruritus [Unknown]
